FAERS Safety Report 6900048-9 (Version None)
Quarter: 2010Q3

REPORT INFORMATION
  Report Type: 
  Country: None (occurrence: None)
  Receive Date: 20100803
  Receipt Date: 20100723
  Transmission Date: 20110219
  Serious: Yes (Hospitalization)
  Sender: FDA-Public Use
  Company Number: JP-BAXTER-2010BH019884

PATIENT
  Age: 80 Year
  Sex: Male
  Weight: 63 kg

DRUGS (32)
  1. ADVATE [Suspect]
     Indication: KNEE OPERATION
     Route: 042
     Dates: start: 20100201, end: 20100301
  2. ADVATE [Suspect]
     Indication: FACTOR VIII DEFICIENCY
     Route: 042
     Dates: start: 20100201, end: 20100301
  3. ADVATE [Suspect]
     Indication: SUBDURAL HAEMATOMA
     Route: 042
     Dates: start: 20100201, end: 20100301
  4. ADVATE [Suspect]
     Route: 042
     Dates: start: 20100706, end: 20100706
  5. ADVATE [Suspect]
     Route: 042
     Dates: start: 20100706, end: 20100706
  6. ADVATE [Suspect]
     Route: 042
     Dates: start: 20100706, end: 20100706
  7. ADVATE [Suspect]
     Route: 042
     Dates: start: 20100706, end: 20100706
  8. ADVATE [Suspect]
     Route: 042
     Dates: start: 20100706, end: 20100706
  9. ADVATE [Suspect]
     Route: 042
     Dates: start: 20100706, end: 20100706
  10. ADVATE [Suspect]
     Route: 042
     Dates: start: 20100707, end: 20100712
  11. ADVATE [Suspect]
     Route: 042
     Dates: start: 20100707, end: 20100712
  12. ADVATE [Suspect]
     Route: 042
     Dates: start: 20100707, end: 20100712
  13. ADVATE [Suspect]
     Route: 042
     Dates: start: 20100706, end: 20100706
  14. ADVATE [Suspect]
     Route: 042
     Dates: start: 20100706, end: 20100706
  15. ADVATE [Suspect]
     Route: 042
     Dates: start: 20100706, end: 20100706
  16. ADVATE [Suspect]
     Route: 042
     Dates: start: 20100714, end: 20100714
  17. ADVATE [Suspect]
     Route: 042
     Dates: start: 20100714, end: 20100714
  18. ADVATE [Suspect]
     Route: 042
     Dates: start: 20100714, end: 20100714
  19. ADVATE [Suspect]
     Route: 042
     Dates: start: 20100707, end: 20100712
  20. ADVATE [Suspect]
     Route: 042
     Dates: start: 20100707, end: 20100712
  21. ADVATE [Suspect]
     Route: 042
     Dates: start: 20100707, end: 20100712
  22. ADVATE [Suspect]
     Route: 042
     Dates: start: 20100707, end: 20100712
  23. ADVATE [Suspect]
     Route: 042
     Dates: start: 20100707, end: 20100712
  24. ADVATE [Suspect]
     Route: 042
     Dates: start: 20100707, end: 20100712
  25. ADVATE [Suspect]
     Route: 042
     Dates: start: 20100722, end: 20100722
  26. ADVATE [Suspect]
     Route: 042
     Dates: start: 20100722, end: 20100722
  27. ADVATE [Suspect]
     Route: 042
     Dates: start: 20100722, end: 20100722
  28. ADVATE [Suspect]
     Route: 042
     Dates: start: 20100723, end: 20100723
  29. ADVATE [Suspect]
     Route: 042
     Dates: start: 20100723, end: 20100723
  30. ADVATE [Suspect]
     Route: 042
     Dates: start: 20100723, end: 20100723
  31. ANTIHEMOPHILIC FACTOR (HUMAN) [Suspect]
     Indication: SUBDURAL HAEMATOMA
     Route: 042
     Dates: start: 20100705, end: 20100706
  32. ANTIHEMOPHILIC FACTOR (HUMAN) [Suspect]
     Indication: FACTOR VIII DEFICIENCY
     Route: 042
     Dates: start: 20100705, end: 20100706

REACTIONS (2)
  - FACTOR VIII INHIBITION [None]
  - SUBDURAL HAEMATOMA [None]
